FAERS Safety Report 11825529 (Version 5)
Quarter: 2017Q4

REPORT INFORMATION
  Report Type: Spontaneous
  Country: US (occurrence: US)
  Receive Date: 20151211
  Receipt Date: 20171019
  Transmission Date: 20180320
  Serious: Yes (Hospitalization)
  Sender: FDA-Public Use
  Company Number: US-JNJFOC-20150800848

PATIENT
  Age: 83 Year
  Sex: Female
  Weight: 44 kg

DRUGS (19)
  1. TIMOLOL. [Concomitant]
     Active Substance: TIMOLOL
  2. RANITIDINE. [Concomitant]
     Active Substance: RANITIDINE
  3. IMBRUVICA [Suspect]
     Active Substance: IBRUTINIB
     Indication: LYMPHOMA
     Route: 048
     Dates: start: 20160609, end: 2016
  4. IMBRUVICA [Suspect]
     Active Substance: IBRUTINIB
     Indication: LYMPHOMA
     Route: 048
     Dates: start: 20150625, end: 2015
  5. IMBRUVICA [Suspect]
     Active Substance: IBRUTINIB
     Indication: CHRONIC LYMPHOCYTIC LEUKAEMIA
     Route: 048
     Dates: start: 20150625, end: 2015
  6. IBUPROFEN. [Concomitant]
     Active Substance: IBUPROFEN
  7. FOSAMAX [Concomitant]
     Active Substance: ALENDRONATE SODIUM
  8. IMBRUVICA [Suspect]
     Active Substance: IBRUTINIB
     Indication: LYMPHOMA
     Route: 048
  9. IMBRUVICA [Suspect]
     Active Substance: IBRUTINIB
     Indication: CHRONIC LYMPHOCYTIC LEUKAEMIA
     Route: 048
     Dates: start: 2015
  10. IMBRUVICA [Suspect]
     Active Substance: IBRUTINIB
     Indication: CHRONIC LYMPHOCYTIC LEUKAEMIA
     Route: 048
  11. SYNTHROID [Concomitant]
     Active Substance: LEVOTHYROXINE SODIUM
  12. IMBRUVICA [Suspect]
     Active Substance: IBRUTINIB
     Indication: LYMPHOMA
     Route: 048
     Dates: start: 2015
  13. IMBRUVICA [Suspect]
     Active Substance: IBRUTINIB
     Indication: CHRONIC LYMPHOCYTIC LEUKAEMIA
     Route: 048
     Dates: start: 2015
  14. IMBRUVICA [Suspect]
     Active Substance: IBRUTINIB
     Indication: CHRONIC LYMPHOCYTIC LEUKAEMIA
     Route: 048
     Dates: start: 20160609, end: 2016
  15. ZOFRAN [Concomitant]
     Active Substance: ONDANSETRON HYDROCHLORIDE
  16. PHENERGAN [Concomitant]
     Active Substance: PROMETHAZINE HYDROCHLORIDE
  17. IMBRUVICA [Suspect]
     Active Substance: IBRUTINIB
     Indication: LYMPHOMA
     Route: 048
     Dates: start: 2015
  18. IMBRUVICA [Suspect]
     Active Substance: IBRUTINIB
     Indication: LYMPHOMA
     Route: 048
  19. IMBRUVICA [Suspect]
     Active Substance: IBRUTINIB
     Indication: CHRONIC LYMPHOCYTIC LEUKAEMIA
     Route: 048

REACTIONS (30)
  - Hip fracture [Unknown]
  - Weight decreased [Unknown]
  - Gait inability [Unknown]
  - Rib fracture [Recovering/Resolving]
  - Unevaluable event [Unknown]
  - Peripheral swelling [Unknown]
  - Fall [Unknown]
  - Pruritus generalised [Not Recovered/Not Resolved]
  - Muscle spasms [Recovered/Resolved]
  - Tooth extraction [Unknown]
  - Paronychia [Unknown]
  - Arthralgia [Unknown]
  - Dysphonia [Unknown]
  - Hyperaesthesia [Unknown]
  - Burning sensation [Unknown]
  - Pain [Unknown]
  - Memory impairment [Unknown]
  - Joint swelling [Unknown]
  - Hypersensitivity [Not Recovered/Not Resolved]
  - Hypoaesthesia [Unknown]
  - Lymphadenopathy [Unknown]
  - Back injury [Unknown]
  - Migraine [Unknown]
  - Myofascial spasm [Recovering/Resolving]
  - Drug dose omission [Unknown]
  - Contusion [Recovered/Resolved]
  - Myalgia [Unknown]
  - Endodontic procedure [Unknown]
  - Constipation [Unknown]
  - Bone pain [Unknown]

NARRATIVE: CASE EVENT DATE: 2015
